FAERS Safety Report 24947878 (Version 1)
Quarter: 2025Q1

REPORT INFORMATION
  Report Type: Report from Study
  Country: CA (occurrence: CA)
  Receive Date: 20250210
  Receipt Date: 20250210
  Transmission Date: 20250409
  Serious: Yes (Hospitalization, Other)
  Sender: CSL BEHRING
  Company Number: CA-BEH-2022149644

PATIENT
  Age: 64 Year
  Sex: Male
  Weight: 80 kg

DRUGS (3)
  1. HIZENTRA [Suspect]
     Active Substance: HUMAN IMMUNOGLOBULIN G
     Indication: Primary immunodeficiency syndrome
     Dosage: (PRODUCT STRENGTH: 10 GRAM), QW
     Route: 065
     Dates: start: 20220607
  2. OXYCODONE [Concomitant]
     Active Substance: OXYCODONE
  3. BILASTINE [Concomitant]
     Active Substance: BILASTINE

REACTIONS (2)
  - Cerebrovascular accident [Unknown]
  - Injection site discharge [Unknown]
